FAERS Safety Report 17099854 (Version 2)
Quarter: 2019Q4

REPORT INFORMATION
  Report Type: Spontaneous
  Country: US (occurrence: US)
  Receive Date: 20191202
  Receipt Date: 20191206
  Transmission Date: 20200122
  Serious: Yes (Death, Hospitalization, Other)
  Sender: FDA-Public Use
  Company Number: US-ALEMBIC PHARMACUETICALS LIMITED-2019SCAL000963

PATIENT

DRUGS (2)
  1. METRONIDAZOLE. [Suspect]
     Active Substance: METRONIDAZOLE
     Indication: CHOLECYSTITIS INFECTIVE
     Dosage: 1.5 GRAM, OD
     Route: 048
  2. METRONIDAZOLE. [Suspect]
     Active Substance: METRONIDAZOLE
     Dosage: 1.5 GRAM, OD
     Route: 042

REACTIONS (5)
  - Lethargy [Fatal]
  - Unresponsive to stimuli [Fatal]
  - Disease progression [Fatal]
  - Mental status changes [Fatal]
  - Toxic encephalopathy [Fatal]
